FAERS Safety Report 16620234 (Version 1)
Quarter: 2019Q3

REPORT INFORMATION
  Report Type: Spontaneous
  Country: US (occurrence: US)
  Receive Date: 20190723
  Receipt Date: 20190723
  Transmission Date: 20191004
  Serious: No
  Sender: FDA-Public Use
  Company Number: US-IGSA-SR10008315

PATIENT
  Age: 18 Year
  Sex: Male

DRUGS (14)
  1. PIMOZIDE. [Concomitant]
     Active Substance: PIMOZIDE
     Dosage: 2 MG, UNK
  2. NAC                                /00082801/ [Concomitant]
     Active Substance: ACETYLCYSTEINE
     Dosage: 600 MG, UNK
  3. NALTREXONE [Concomitant]
     Active Substance: NALTREXONE
  4. SALINE                             /00075401/ [Concomitant]
     Active Substance: SODIUM CHLORIDE
     Dosage: 1000 ML, UNK
  5. CAT^S CLAW [Concomitant]
     Active Substance: CAT^S CLAW
     Dosage: 1000 MG, UNK
  6. L-LYSINE                           /00919901/ [Concomitant]
     Active Substance: LYSINE
     Dosage: 1000 MG, UNK
  7. SILYMARIN [Concomitant]
     Active Substance: DIETARY SUPPLEMENT\HERBALS\MILK THISTLE
  8. TROKENDI [Concomitant]
     Active Substance: TOPIRAMATE
     Dosage: 25 MG, UNK
  9. GAMUNEX-C [Suspect]
     Active Substance: HUMAN IMMUNOGLOBULIN G
     Indication: IMMUNODEFICIENCY COMMON VARIABLE
     Dosage: 70 G, Q.4WK.
     Route: 042
     Dates: start: 20190504
  10. PAU D ARCO GP [Concomitant]
     Dosage: 1000 MG, UNK
  11. LIDOCAINE. [Concomitant]
     Active Substance: LIDOCAINE
  12. ULTRA OMEGA 3 6 9 [Concomitant]
     Dosage: 1400 MG, UNK
  13. PROBIOTIC                          /06395501/ [Concomitant]
     Active Substance: BIFIDOBACTERIUM ANIMALIS LACTIS
  14. TURMERIC                           /01079602/ [Concomitant]
     Active Substance: HERBALS\TURMERIC
     Dosage: 500 MG, UNK

REACTIONS (6)
  - Blood pressure increased [Recovered/Resolved]
  - Headache [Recovered/Resolved]
  - Diarrhoea [Recovered/Resolved]
  - Nausea [Recovered/Resolved]
  - Pyrexia [Recovered/Resolved]
  - Epistaxis [Recovered/Resolved]

NARRATIVE: CASE EVENT DATE: 20190504
